FAERS Safety Report 7631638-6 (Version None)
Quarter: 2011Q3

REPORT INFORMATION
  Report Type: 
  Country: None (occurrence: None)
  Receive Date: 20110725
  Receipt Date: 20110201
  Transmission Date: 20111222
  Serious: No
  Sender: FDA-Public Use
  Company Number: US-BRISTOL-MYERS SQUIBB COMPANY-15522816

PATIENT
  Age: 73 Year
  Sex: Male

DRUGS (6)
  1. WARFARIN SODIUM [Suspect]
  2. FISH OIL [Concomitant]
  3. VITAMIN D [Concomitant]
  4. BENICAR [Concomitant]
  5. NAPROXEN (ALEVE) [Concomitant]
     Dosage: 1DF=1TABS
  6. CARVEDILOL [Concomitant]

REACTIONS (2)
  - PAIN [None]
  - PROTHROMBIN TIME ABNORMAL [None]
